FAERS Safety Report 4868043-1 (Version None)
Quarter: 2005Q4

REPORT INFORMATION
  Report Type: 
  Country: None (occurrence: None)
  Receive Date: 20051227
  Receipt Date: 20051227
  Transmission Date: 20060501
  Serious: Yes (Other)
  Sender: FDA-Public Use
  Company Number: None

PATIENT
  Age: 52 Year
  Sex: Male
  Weight: 50.3493 kg

DRUGS (3)
  1. COMPAZINE [Suspect]
     Indication: DIZZINESS
     Dosage: 10 MG QD
     Dates: start: 20021107
  2. COMPAZINE [Suspect]
     Indication: NAUSEA
     Dosage: 10 MG QD
     Dates: start: 20021107
  3. TIGAN [Concomitant]

REACTIONS (4)
  - BLINDNESS UNILATERAL [None]
  - DRY EYE [None]
  - GLAUCOMA [None]
  - VISUAL ACUITY REDUCED [None]
